FAERS Safety Report 23073486 (Version 1)
Quarter: 2023Q4

REPORT INFORMATION
  Report Type: Spontaneous
  Country: DE (occurrence: DE)
  Receive Date: 20231017
  Receipt Date: 20231017
  Transmission Date: 20240110
  Serious: Yes (Life-Threatening, Other)
  Sender: FDA-Public Use
  Company Number: None

PATIENT
  Age: 20 Year
  Sex: Male

DRUGS (2)
  1. QUETIAPINE [Suspect]
     Active Substance: QUETIAPINE
     Indication: Schizophrenia
     Dosage: 100-0-400MG
     Dates: end: 20230711
  2. FLUVOXAMINE MALEATE [Suspect]
     Active Substance: FLUVOXAMINE MALEATE
     Indication: Schizophrenia
     Dosage: 100-0-100MG
     Dates: end: 20230711

REACTIONS (12)
  - Antipsychotic drug level increased [Unknown]
  - Areflexia [Recovered/Resolved]
  - Electrocardiogram QT prolonged [Recovered/Resolved]
  - Potentiating drug interaction [Unknown]
  - Dry skin [Recovered/Resolved]
  - Somnolence [Recovered/Resolved]
  - Syncope [Recovered/Resolved]
  - Erythema [Recovered/Resolved]
  - Pyrexia [Recovered/Resolved]
  - Tachycardia [Recovered/Resolved]
  - Labelled drug-food interaction issue [Unknown]
  - Sopor [Recovered/Resolved]

NARRATIVE: CASE EVENT DATE: 20230712
